FAERS Safety Report 9182068 (Version 1)
Quarter: 2012Q4

REPORT INFORMATION
  Report Type: 
  Country: US (occurrence: US)
  Receive Date: 20121030
  Receipt Date: 20121030
  Transmission Date: 20130627
  Serious: Yes (Hospitalization)
  Sender: FDA-Public Use
  Company Number: US-GLENMARK GENERICS INC.-2012GMK004259

PATIENT
  Age: 30 Year
  Sex: Female

DRUGS (1)
  1. LEVOFLOXACIN [Suspect]
     Indication: URINARY TRACT INFECTION
     Dosage: 500 mg, qd
     Route: 048

REACTIONS (1)
  - Hepatitis acute [Recovering/Resolving]
